FAERS Safety Report 4957673-4 (Version None)
Quarter: 2006Q1

REPORT INFORMATION
  Report Type: 
  Country: None (occurrence: None)
  Receive Date: 20060330
  Receipt Date: 20060322
  Transmission Date: 20060701
  Serious: Yes (Other)
  Sender: FDA-Public Use
  Company Number: US-JNJFOC-20050805259

PATIENT
  Sex: Female

DRUGS (9)
  1. EXTRA STRENGTH TYLENOL [Suspect]
     Indication: PAIN
  2. EXTRA STRENGTH TYLENOL [Suspect]
  3. OXYBUTYNIN [Concomitant]
  4. ASPIRIN [Concomitant]
  5. SINEMET [Concomitant]
  6. SINEMET [Concomitant]
  7. REMERON [Concomitant]
  8. ATIVAN [Concomitant]
  9. ROXANOL [Concomitant]
     Indication: PAIN MANAGEMENT

REACTIONS (6)
  - CONVULSION [None]
  - DERMATITIS BULLOUS [None]
  - OPEN WOUND [None]
  - PHARMACEUTICAL PRODUCT COMPLAINT [None]
  - SALIVARY HYPERSECRETION [None]
  - TRANSIENT ISCHAEMIC ATTACK [None]
